FAERS Safety Report 9660093 (Version 7)
Quarter: 2015Q1

REPORT INFORMATION
  Report Type: Report from Study
  Country: CA (occurrence: CA)
  Receive Date: 20131031
  Receipt Date: 20150109
  Transmission Date: 20150721
  Serious: Yes (Other)
  Sender: FDA-Public Use
  Company Number: CA-ROCHE-1295785

PATIENT
  Age: 56 Year
  Sex: Male
  Weight: 85 kg

DRUGS (9)
  1. GLUCOPHAGE [Concomitant]
     Active Substance: METFORMIN HYDROCHLORIDE
  2. AVASTIN [Suspect]
     Active Substance: BEVACIZUMAB
     Route: 042
     Dates: start: 20140919
  3. DIAMICRON [Concomitant]
     Active Substance: GLICLAZIDE
  4. XATRAL [Concomitant]
     Active Substance: ALFUZOSIN
  5. LOSEC [Concomitant]
     Active Substance: OMEPRAZOLE
  6. INSULIN RAPID [Concomitant]
     Active Substance: INSULIN NOS
  7. CRESTOR [Concomitant]
     Active Substance: ROSUVASTATIN CALCIUM
  8. AVASTIN [Suspect]
     Active Substance: BEVACIZUMAB
     Indication: LUNG NEOPLASM MALIGNANT
     Dosage: STARTING DOSE UNKNOWN, IN JAN/2014, LAST DOSE OF BEVACIZUMAB WAS RECEIVED.
     Route: 042
     Dates: start: 20131003, end: 20141031
  9. AVASTIN [Suspect]
     Active Substance: BEVACIZUMAB
     Route: 042
     Dates: start: 20131024

REACTIONS (6)
  - Heart rate increased [Unknown]
  - Hypoglycaemia [Unknown]
  - Erythema [Unknown]
  - Platelet count decreased [Unknown]
  - Infusion related reaction [Unknown]
  - Metastases to central nervous system [Unknown]

NARRATIVE: CASE EVENT DATE: 20131024
